FAERS Safety Report 20894157 (Version 2)
Quarter: 2022Q2

REPORT INFORMATION
  Report Type: Report from Study
  Country: US (occurrence: US)
  Receive Date: 20220531
  Receipt Date: 20220613
  Transmission Date: 20220721
  Serious: Yes (Hospitalization, Other)
  Sender: FDA-Public Use
  Company Number: US-TAKEDA-2022TUS036142

PATIENT
  Age: 7 Year
  Sex: Female
  Weight: 20 kg

DRUGS (11)
  1. TEDUGLUTIDE [Suspect]
     Active Substance: TEDUGLUTIDE
     Indication: Short-bowel syndrome
     Dosage: 0.105 MILLILITER, QD
     Route: 050
     Dates: start: 20220524
  2. TEDUGLUTIDE [Suspect]
     Active Substance: TEDUGLUTIDE
     Indication: Short-bowel syndrome
     Dosage: 0.105 MILLILITER, QD
     Route: 050
     Dates: start: 20220524
  3. TEDUGLUTIDE [Suspect]
     Active Substance: TEDUGLUTIDE
     Indication: Short-bowel syndrome
     Dosage: 0.105 MILLILITER, QD
     Route: 050
     Dates: start: 20220524
  4. TEDUGLUTIDE [Suspect]
     Active Substance: TEDUGLUTIDE
     Indication: Short-bowel syndrome
     Dosage: 0.105 MILLILITER, QD
     Route: 050
     Dates: start: 20220524
  5. TEDUGLUTIDE [Suspect]
     Active Substance: TEDUGLUTIDE
     Dosage: 1.05 MILLIGRAM
     Route: 058
     Dates: start: 20220524
  6. TEDUGLUTIDE [Suspect]
     Active Substance: TEDUGLUTIDE
     Dosage: 1.05 MILLIGRAM
     Route: 058
     Dates: start: 20220524
  7. TEDUGLUTIDE [Suspect]
     Active Substance: TEDUGLUTIDE
     Dosage: 1.05 MILLIGRAM
     Route: 058
     Dates: start: 20220524
  8. TEDUGLUTIDE [Suspect]
     Active Substance: TEDUGLUTIDE
     Dosage: 1.05 MILLIGRAM
     Route: 058
     Dates: start: 20220524
  9. PERIACTIN [Concomitant]
     Active Substance: CYPROHEPTADINE HYDROCHLORIDE
     Indication: Vomiting
     Dosage: 2 MILLIGRAM, Q12H
     Route: 048
     Dates: start: 20220427
  10. PANTOPRAZOLE [Concomitant]
     Active Substance: PANTOPRAZOLE
     Indication: Vomiting
     Dosage: 40 MILLIGRAM, QD
     Route: 042
     Dates: start: 20220401
  11. LEVOCARNITINE [Concomitant]
     Active Substance: LEVOCARNITINE
     Indication: Carnitine deficiency
     Dosage: 400 MILLIGRAM, QD
     Route: 048
     Dates: start: 20220127

REACTIONS (2)
  - Seizure [Recovering/Resolving]
  - Urinary tract infection [Unknown]

NARRATIVE: CASE EVENT DATE: 20220526
